FAERS Safety Report 4838553-1 (Version None)
Quarter: 2005Q4

REPORT INFORMATION
  Report Type: 
  Country: None (occurrence: None)
  Receive Date: 20051123
  Receipt Date: 20051123
  Transmission Date: 20060501
  Serious: Yes (Hospitalization)
  Sender: FDA-Public Use
  Company Number: None

PATIENT
  Age: 62 Year
  Sex: Male
  Weight: 72.5755 kg

DRUGS (1)
  1. BACTRIM DS [Suspect]
     Indication: URINARY TRACT INFECTION
     Dosage: DOUBLE STRENGTH 1 TAB BID PO
     Route: 048
     Dates: start: 20051018, end: 20051021

REACTIONS (6)
  - BODY TEMPERATURE INCREASED [None]
  - HYDROCELE [None]
  - PRIAPISM [None]
  - SCROTAL PAIN [None]
  - SCROTAL SWELLING [None]
  - THERAPY NON-RESPONDER [None]
